FAERS Safety Report 5170775-5 (Version None)
Quarter: 2006Q4

REPORT INFORMATION
  Report Type: 
  Country: None (occurrence: None)
  Receive Date: 20060919
  Receipt Date: 20060516
  Transmission Date: 20070319
  Serious: No
  Sender: FDA-Public Use
  Company Number: BDI-008258

PATIENT
  Age: 13 Year
  Sex: Male

DRUGS (3)
  1. MULTIHANCE [Suspect]
     Indication: NUCLEAR MAGNETIC RESONANCE IMAGING BRAIN
     Dosage: 11 ML ONCE IV
     Route: 042
     Dates: start: 20060516, end: 20060516
  2. MULTIHANCE [Suspect]
     Indication: TINNITUS
     Dosage: 11 ML ONCE IV
     Route: 042
     Dates: start: 20060516, end: 20060516
  3. GROWTH HORMONE [Concomitant]

REACTIONS (3)
  - FACE OEDEMA [None]
  - NASAL CONGESTION [None]
  - SNEEZING [None]
